FAERS Safety Report 5913732-0 (Version None)
Quarter: 2008Q4

REPORT INFORMATION
  Report Type: 
  Country: None (occurrence: None)
  Receive Date: 20081007
  Receipt Date: 20080930
  Transmission Date: 20090506
  Serious: Yes (Hospitalization)
  Sender: FDA-Public Use
  Company Number: CERZ-1000284

PATIENT
  Age: 9 Year
  Sex: Male
  Weight: 20 kg

DRUGS (1)
  1. CEREZYME [Suspect]
     Indication: GAUCHER'S DISEASE
     Dosage: 1000 U, Q2W, INTRAVENOUS
     Route: 042
     Dates: start: 20071207

REACTIONS (3)
  - HEAD INJURY [None]
  - ORTHOSTATIC HYPOTENSION [None]
  - SYNCOPE [None]
